FAERS Safety Report 8653132 (Version 10)
Quarter: 2025Q4

REPORT INFORMATION
  Report Type: Spontaneous
  Country: EU (occurrence: EU)
  Receive Date: 20120706
  Receipt Date: 20251117
  Transmission Date: 20260118
  Serious: Yes (Death, Hospitalization, Other)
  Sender: ABBVIE
  Company Number: None

PATIENT
  Age: 72 Year
  Weight: 103 kg

DRUGS (10)
  1. CIPRALEX [Suspect]
     Active Substance: ESCITALOPRAM OXALATE
     Indication: Schizoaffective disorder
     Dosage: DAILY DOSE: 30.0 MG, TOTAL: 65700.0 MG, FORM: UNKNOWN,?OVERDOSE: 30MG. EXACT DATE UNKNOWN, STARTE...
     Route: 048
  2. MIRTAZAPINE [Suspect]
     Active Substance: MIRTAZAPINE
     Indication: Schizoaffective disorder
     Dosage: DAILY DOSE: 30.0 MG, TOTAL: 8850.0 MG, ?STRENGTH: 30MG,?STYRKE: 30MG.
     Route: 048
  3. LEVOFLOXACIN [Suspect]
     Active Substance: LEVOFLOXACIN
     Indication: Schizoaffective disorder
     Dosage: DOSE: 1+0+0+1.5, STRENGTH: 6 MMOL LI+
     Route: 048
  4. ZELDOX [Suspect]
     Active Substance: ZIPRASIDONE
     Indication: Schizoaffective disorder
     Dosage: DAILY DOSE: 80.0 MG, TOTAL: 175200.0 MG, STRENGTH: 40 MG. EXACT START DATE IS NOT KNOWN, BUT AT L...
     Route: 048
  5. AMLODIPINE [Concomitant]
     Active Substance: AMLODIPINE BESYLATE
     Indication: Product used for unknown indication
  6. FRAGMIN [Concomitant]
     Active Substance: DALTEPARIN SODIUM
     Indication: Product used for unknown indication
  7. FERROUS SULFATE [Concomitant]
     Active Substance: FERROUS SULFATE
     Indication: Product used for unknown indication
     Dosage: DAILY DOSE: 100.0 MG, ?UPDATE (13JUN2012): DOSE 100.
  8. ALPRAZOLAM [Concomitant]
     Active Substance: ALPRAZOLAM
     Indication: Product used for unknown indication
     Dosage: DAILY DOSE: 0.5 MG,?UPDATE (13JUN2012): DOSE 0.5
  9. BENDROFLUMETHIAZIDE\POTASSIUM CHLORIDE [Concomitant]
     Active Substance: BENDROFLUMETHIAZIDE\POTASSIUM CHLORIDE
     Indication: Schizoaffective disorder
     Dosage: DAILY DOSE: 1.0 DF,?1 DF, QD.
  10. POTASSIUM CHLORIDE [Concomitant]
     Active Substance: POTASSIUM CHLORIDE
     Indication: Product used for unknown indication
     Dosage: DOSE 1, CENTYL WITH POTASSIUM CHLORIDE, ?UPDATE (13JUN2012): DOSE 1,  CENTYL WITH POTASSIUM CHLOR...

REACTIONS (29)
  - Neuroleptic malignant syndrome [Fatal]
  - Lactic acidosis [Fatal]
  - Lacunar infarction [Fatal]
  - Organ failure [Fatal]
  - Renal failure [Fatal]
  - Hepatic cirrhosis [Fatal]
  - Internal fixation of fracture [Fatal]
  - Rhabdomyolysis [Fatal]
  - Pyrexia [Not Recovered/Not Resolved]
  - Hyperventilation [Fatal]
  - Confusional state [Fatal]
  - Hypertension [Not Recovered/Not Resolved]
  - Humerus fracture [Not Recovered/Not Resolved]
  - Fall [Recovered/Resolved]
  - Dyspnoea [Not Recovered/Not Resolved]
  - Urinary tract infection [Fatal]
  - Constipation [Fatal]
  - Product use in unapproved indication [Unknown]
  - Overdose [Unknown]
  - Hyperdynamic left ventricle [Fatal]
  - Hepatic enzyme increased [Fatal]
  - Acute kidney injury [Fatal]
  - Depressed level of consciousness [Fatal]
  - Cardiac hypertrophy [Fatal]
  - Internal fixation of fracture [Unknown]
  - Myoglobin blood increased [Fatal]
  - Blood creatine phosphokinase increased [Fatal]
  - Liver disorder [Fatal]
  - Off label use [Unknown]

NARRATIVE: CASE EVENT DATE: 20111021
